FAERS Safety Report 4758661-3 (Version None)
Quarter: 2005Q3

REPORT INFORMATION
  Report Type: 
  Country: None (occurrence: None)
  Receive Date: 20050901
  Receipt Date: 20050822
  Transmission Date: 20060218
  Serious: Yes (Life-Threatening, Hospitalization)
  Sender: FDA-Public Use
  Company Number: US-AMGEN-US147390

PATIENT
  Sex: Female
  Weight: 60 kg

DRUGS (3)
  1. ENBREL [Suspect]
     Indication: JUVENILE ARTHRITIS
     Route: 058
     Dates: start: 20030101, end: 20050701
  2. METHOTREXATE [Concomitant]
     Indication: JUVENILE ARTHRITIS
     Route: 048
     Dates: end: 20050301
  3. NAPROSYN [Concomitant]
     Indication: JUVENILE ARTHRITIS
     Route: 048

REACTIONS (2)
  - GLOMERULONEPHRITIS MEMBRANOUS [None]
  - SYSTEMIC LUPUS ERYTHEMATOSUS [None]
